FAERS Safety Report 17498636 (Version 2)
Quarter: 2020Q3

REPORT INFORMATION
  Report Type: Spontaneous
  Country: US (occurrence: US)
  Receive Date: 20200304
  Receipt Date: 20200825
  Transmission Date: 20201102
  Serious: Yes (Life-Threatening, Disabling, Other)
  Sender: FDA-Public Use
  Company Number: US-BRISTOL-MYERS SQUIBB COMPANY-BMS-2020-017626

PATIENT
  Sex: Female

DRUGS (1)
  1. ELIQUIS [Suspect]
     Active Substance: APIXABAN
     Indication: HEART TRANSPLANT
     Dosage: 2.5 MILLIGRAM, BID
     Route: 048

REACTIONS (6)
  - Intentional product use issue [Unknown]
  - Hypertension [Unknown]
  - Malaise [Unknown]
  - Thrombosis [Unknown]
  - Renal failure [Unknown]
  - Tendonitis [Unknown]
